FAERS Safety Report 23745660 (Version 1)
Quarter: 2024Q2

REPORT INFORMATION
  Report Type: Spontaneous
  Country: US (occurrence: None)
  Receive Date: 20240416
  Receipt Date: 20240416
  Transmission Date: 20240715
  Serious: No
  Sender: FDA-Public Use
  Company Number: 2024A077788

PATIENT
  Sex: Male

DRUGS (1)
  1. BREZTRI [Suspect]
     Active Substance: BUDESONIDE\FORMOTEROL\GLYCOPYRROLATE
     Dosage: 160.0UG UNKNOWN
     Route: 055

REACTIONS (7)
  - Fear [Unknown]
  - Sleep apnoea syndrome [Unknown]
  - Fall [Unknown]
  - Head injury [Unknown]
  - Mass [Unknown]
  - Muscle spasms [Unknown]
  - Device use issue [Unknown]
